FAERS Safety Report 4589617-1 (Version None)
Quarter: 2005Q1

REPORT INFORMATION
  Report Type: 
  Country: None (occurrence: None)
  Receive Date: 20050216
  Receipt Date: 20050202
  Transmission Date: 20050727
  Serious: Yes (Hospitalization)
  Sender: FDA-Public Use
  Company Number: 02100-JPN-05-0057

PATIENT
  Age: 74 Year
  Sex: Female

DRUGS (10)
  1. CILOSTAZOL [Suspect]
     Indication: CEREBRAL INFARCTION
     Dosage: 200 MG ORAL
     Route: 048
     Dates: start: 20031118, end: 20040903
  2. FELBINAC [Concomitant]
  3. MELOXICAM [Concomitant]
  4. MAGNESIUM [Concomitant]
  5. YEAST DRIED [Concomitant]
  6. CARMELLOSE [Concomitant]
  7. INDOMETHACIN [Concomitant]
  8. KETOPROFEN [Concomitant]
  9. IBUPROFEN [Concomitant]
  10. AZULENE SULFONATE [Concomitant]

REACTIONS (9)
  - ALANINE AMINOTRANSFERASE ABNORMAL [None]
  - BACK INJURY [None]
  - BLOOD LACTATE DEHYDROGENASE ABNORMAL [None]
  - BLOOD UREA INCREASED [None]
  - BLOOD URINE PRESENT [None]
  - FALL [None]
  - HYDRONEPHROSIS [None]
  - LYMPHOCYTE COUNT INCREASED [None]
  - NEUTROPHIL COUNT DECREASED [None]
